FAERS Safety Report 14611223 (Version 3)
Quarter: 2018Q3

REPORT INFORMATION
  Report Type: Report from Study
  Country: US (occurrence: US)
  Receive Date: 20180308
  Receipt Date: 20180902
  Transmission Date: 20181010
  Serious: Yes (Other)
  Sender: FDA-Public Use
  Company Number: PHEH2018US008279

PATIENT
  Age: 54 Year
  Sex: Female

DRUGS (5)
  1. LEVETIRACETAM. [Concomitant]
     Active Substance: LEVETIRACETAM
     Dosage: 750 ML, QD (A DAY 1 IN AM, 2 AT NIGHT)
     Route: 065
  2. FEMARA [Suspect]
     Active Substance: LETROZOLE
     Indication: BREAST CANCER
     Dosage: 2.5 MG, QD (ONCE DAILY)
     Route: 048
  3. XELODA [Concomitant]
     Active Substance: CAPECITABINE
     Indication: BREAST CANCER
     Dosage: 500 MG, ONE WEEK ON ONE WEEK OFF
     Route: 065
  4. LEVETIRACETAM. [Concomitant]
     Active Substance: LEVETIRACETAM
     Indication: PRODUCT USED FOR UNKNOWN INDICATION
     Dosage: 250 MG, BID
     Route: 065
  5. XELODA [Concomitant]
     Active Substance: CAPECITABINE
     Dosage: 1500 ML, QD ( A DAY 7 DAYS ON AND 7 DAYS OFF 2 IN AM AND 1 PM)
     Route: 065

REACTIONS (12)
  - Retinal disorder [Unknown]
  - Blood oestrogen abnormal [Unknown]
  - Malaise [Unknown]
  - Metastases to central nervous system [Unknown]
  - Metastases to bone [Unknown]
  - Fall [Unknown]
  - Sleep disorder [Unknown]
  - Seizure [Unknown]
  - Inflammation [Unknown]
  - Gait disturbance [Unknown]
  - Dyspnoea [Unknown]
  - Benign neoplasm [Unknown]

NARRATIVE: CASE EVENT DATE: 2009
